FAERS Safety Report 9300081 (Version 1)
Quarter: 2013Q1

REPORT INFORMATION
  Report Type: Spontaneous
  Country: US (occurrence: None)
  Receive Date: 20121231
  Receipt Date: 20121231
  Transmission Date: 20140127
  Serious: Yes (Hospitalization, Other)
  Sender: FDA-Public Use
  Company Number: RB-470043-2012

PATIENT
  Age: 31 Year
  Sex: Female

DRUGS (5)
  1. SUBOXONE 8MG/2 [Suspect]
     Indication: DRUG DEPENDENCE
     Dosage: SUBOXONE FILM; UP TO 16MG DAILY SUBLINGUAL)
     Dates: start: 20120808, end: 20121115
  2. SUBOXONE [Suspect]
     Dosage: 1 DOSE SUBLINGUAL
     Dates: start: 2012, end: 2012
  3. XANAX [Concomitant]
  4. WELLBUTRIN [Concomitant]
  5. LEXAPRO [Concomitant]

REACTIONS (10)
  - Abscess limb [None]
  - Colitis ulcerative [None]
  - Bipolar I disorder [None]
  - Condition aggravated [None]
  - Toothache [None]
  - Drug withdrawal syndrome [None]
  - Wrong technique in drug usage process [None]
  - Pain in extremity [None]
  - Stress [None]
  - Diarrhoea [None]
